FAERS Safety Report 5343988-7 (Version None)
Quarter: 2007Q2

REPORT INFORMATION
  Report Type: 
  Country: None (occurrence: None)
  Receive Date: 20070604
  Receipt Date: 20070529
  Transmission Date: 20071010
  Serious: Yes (Hospitalization)
  Sender: FDA-Public Use
  Company Number: FR-AVENTIS-200711792FR

PATIENT
  Age: 81 Year
  Sex: Female

DRUGS (10)
  1. LOVENOX [Suspect]
     Indication: DRUG USE FOR UNKNOWN INDICATION
     Route: 058
     Dates: start: 20070423, end: 20070502
  2. KARDEGIC                           /00002703/ [Suspect]
     Indication: DRUG USE FOR UNKNOWN INDICATION
     Route: 048
     Dates: end: 20070507
  3. PLAVIX [Suspect]
     Indication: DRUG USE FOR UNKNOWN INDICATION
     Route: 048
     Dates: end: 20070504
  4. PLAVIX [Suspect]
     Route: 048
     Dates: start: 20070507
  5. TENORMIN [Concomitant]
     Indication: DRUG USE FOR UNKNOWN INDICATION
     Route: 048
     Dates: start: 20070426
  6. AUGMENTIN                          /00756801/ [Concomitant]
     Indication: DRUG USE FOR UNKNOWN INDICATION
     Dates: start: 20070423
  7. OFLOCET                            /00731801/ [Concomitant]
     Indication: DRUG USE FOR UNKNOWN INDICATION
     Dates: start: 20070423, end: 20070507
  8. NEBILOX [Concomitant]
  9. TRAMADOL HCL [Concomitant]
  10. DURAGESIC-100 [Concomitant]

REACTIONS (2)
  - ANAEMIA [None]
  - GASTRITIS [None]
